FAERS Safety Report 10343869 (Version 1)
Quarter: 2014Q3

REPORT INFORMATION
  Report Type: Spontaneous
  Country: JP (occurrence: JP)
  Receive Date: 20140726
  Receipt Date: 20140726
  Transmission Date: 20150326
  Serious: No
  Sender: FDA-Public Use
  Company Number: PHHY2011JP121242

PATIENT

DRUGS (3)
  1. DASATINIB [Suspect]
     Active Substance: DASATINIB
  2. TASIGNA [Suspect]
     Active Substance: NILOTINIB
     Dosage: 150 MG
  3. GLIVEC [Suspect]
     Active Substance: IMATINIB MESYLATE
     Indication: CHRONIC MYELOID LEUKAEMIA

REACTIONS (4)
  - Drug intolerance [Unknown]
  - Diarrhoea [Unknown]
  - Rash [Unknown]
  - Hyperglycaemia [Unknown]
